FAERS Safety Report 5954351-X (Version None)
Quarter: 2008Q4

REPORT INFORMATION
  Report Type: 
  Country: None (occurrence: None)
  Receive Date: 20081117
  Receipt Date: 20080131
  Transmission Date: 20090506
  Serious: No
  Sender: FDA-Public Use
  Company Number: US-AMGEN-KDL221501

PATIENT
  Sex: Female

DRUGS (3)
  1. ENBREL [Suspect]
     Indication: RHEUMATOID ARTHRITIS
     Dates: start: 20010401
  2. PLAQUENIL [Concomitant]
     Dates: start: 20070301
  3. SULFASALAZINE [Concomitant]
     Dates: start: 20070301

REACTIONS (1)
  - RHEUMATOID ARTHRITIS [None]
